FAERS Safety Report 16936962 (Version 4)
Quarter: 2021Q4

REPORT INFORMATION
  Report Type: Spontaneous
  Country: US (occurrence: US)
  Receive Date: 20191018
  Receipt Date: 20211203
  Transmission Date: 20220303
  Serious: Yes (Other)
  Sender: FDA-Public Use
  Company Number: US-PFIZER INC-2018138797

PATIENT
  Age: 32 Year
  Sex: Female
  Weight: 87.54 kg

DRUGS (7)
  1. REVATIO [Suspect]
     Active Substance: SILDENAFIL CITRATE
     Indication: Pulmonary arterial hypertension
     Dosage: 50 MG (2 AND 1/2), THREE TIMES A DAY, 4-6 HOURS APART
     Route: 048
     Dates: start: 20071024
  2. REVATIO [Suspect]
     Active Substance: SILDENAFIL CITRATE
     Indication: Double outlet right ventricle
     Dosage: 20 MG, 2X/DAY
  3. REVATIO [Suspect]
     Active Substance: SILDENAFIL CITRATE
     Dosage: 60 MG, UNK
  4. REVATIO [Suspect]
     Active Substance: SILDENAFIL CITRATE
     Dosage: 2 TABLETS  3 TIMES DAILY
     Route: 048
  5. GABAPENTIN [Concomitant]
     Active Substance: GABAPENTIN
     Indication: Neuralgia
     Dosage: 300 MG, TWO TIMES DAILY
  6. METOPROLOL [Concomitant]
     Active Substance: METOPROLOL
     Indication: Arrhythmia
     Dosage: 20 MG, 2X/DAY
     Dates: start: 1999
  7. METOPROLOL [Concomitant]
     Active Substance: METOPROLOL
     Dosage: 50 MG, 2X/DAY

REACTIONS (3)
  - Arrhythmia [Unknown]
  - Prescribed overdose [Unknown]
  - Exercise tolerance decreased [Unknown]

NARRATIVE: CASE EVENT DATE: 20071024
